FAERS Safety Report 4930893-0 (Version None)
Quarter: 2006Q1

REPORT INFORMATION
  Report Type: 
  Country: None (occurrence: None)
  Receive Date: 20060227
  Receipt Date: 20060214
  Transmission Date: 20060701
  Serious: Yes (Hospitalization)
  Sender: FDA-Public Use
  Company Number: CAP06000040

PATIENT
  Age: 59 Year
  Sex: Female

DRUGS (9)
  1. ACTONEL [Suspect]
     Indication: OSTEOPOROSIS
     Dosage: SEE IMAGE
     Route: 048
     Dates: start: 20051201, end: 20051201
  2. ACTONEL [Suspect]
     Indication: OSTEOPOROSIS
     Dosage: SEE IMAGE
     Route: 048
     Dates: start: 20060207
  3. LIPITOR [Concomitant]
  4. MONOCOR (BISOPROLOL FUMARATE) [Concomitant]
  5. CALCIUM (CALCIUM) [Concomitant]
  6. VITAMIN D [Concomitant]
  7. GLUCOSAMINE (GLUCOSAMINE) [Concomitant]
  8. FLUOTIC (SODIUM FLUORIDE) [Concomitant]
  9. THIAZIDES [Concomitant]

REACTIONS (3)
  - BACK PAIN [None]
  - DRUG HYPERSENSITIVITY [None]
  - PLEURITIC PAIN [None]
